FAERS Safety Report 20645537 (Version 2)
Quarter: 2022Q2

REPORT INFORMATION
  Report Type: Spontaneous
  Country: ES (occurrence: ES)
  Receive Date: 20220328
  Receipt Date: 20220411
  Transmission Date: 20220721
  Serious: No
  Sender: FDA-Public Use
  Company Number: ES-LUPIN PHARMACEUTICALS INC.-2022-04290

PATIENT
  Age: 73 Year
  Sex: Female

DRUGS (9)
  1. MORPHINE [Suspect]
     Active Substance: MORPHINE
     Indication: Skin ulcer
     Dosage: UNK
     Route: 065
  2. MORPHINE [Suspect]
     Active Substance: MORPHINE
     Indication: Pain
  3. OXYCODONE [Suspect]
     Active Substance: OXYCODONE
     Indication: Skin ulcer
     Dosage: UNK
     Route: 065
  4. OXYCODONE [Suspect]
     Active Substance: OXYCODONE
     Indication: Pain
  5. ACETAMINOPHEN [Suspect]
     Active Substance: ACETAMINOPHEN
     Indication: Skin ulcer
     Dosage: 4 GRAM, QD
     Route: 065
  6. METAMIZOLE [Suspect]
     Active Substance: METAMIZOLE
     Indication: Skin ulcer
     Dosage: UNK UNK, QD (460-575 GRAM)
     Route: 065
  7. BUPRENORPHINE [Suspect]
     Active Substance: BUPRENORPHINE
     Indication: Skin ulcer
     Dosage: 1 DOSAGE FORM, QID (52 MICROGRAM PER HOUR)
     Route: 062
  8. SEVOFLURANE [Concomitant]
     Active Substance: SEVOFLURANE
     Indication: Skin ulcer
     Dosage: UNK (STARTING DOSES OF 1ML/CM^2 TWICE A DAY, AND UP-TITRATED ACCORDING TO RESPONSE TO A MAXIMUM OF 7
     Route: 061
  9. SALINE [Concomitant]
     Active Substance: SODIUM CHLORIDE
     Indication: Wound treatment
     Dosage: UNK
     Route: 061

REACTIONS (7)
  - Drug ineffective for unapproved indication [Unknown]
  - Off label use [Unknown]
  - Dizziness [Unknown]
  - Vomiting [Unknown]
  - Constipation [Unknown]
  - Somnolence [Unknown]
  - Drug intolerance [Unknown]
